FAERS Safety Report 23064382 (Version 1)
Quarter: 2023Q4

REPORT INFORMATION
  Report Type: Spontaneous
  Country: US (occurrence: None)
  Receive Date: 20231013
  Receipt Date: 20231013
  Transmission Date: 20240109
  Serious: Yes (Hospitalization)
  Sender: FDA-Public Use
  Company Number: None

PATIENT
  Age: 55 Year
  Sex: Male
  Weight: 101 kg

DRUGS (2)
  1. DULAGLUTIDE [Suspect]
     Active Substance: DULAGLUTIDE
     Dosage: OTHER QUANTITY : 4.5;?FREQUENCY : WEEKLY;?
     Route: 058
     Dates: start: 20221212, end: 20230126
  2. TRULICITY [Suspect]
     Active Substance: DULAGLUTIDE
     Dates: end: 20230126

REACTIONS (3)
  - Dyspepsia [None]
  - Vomiting [None]
  - Epigastric discomfort [None]

NARRATIVE: CASE EVENT DATE: 20230126
